FAERS Safety Report 16821268 (Version 1)
Quarter: 2019Q3

REPORT INFORMATION
  Report Type: Spontaneous
  Country: DE (occurrence: DE)
  Receive Date: 20190918
  Receipt Date: 20190918
  Transmission Date: 20191005
  Serious: Yes (Other)
  Sender: FDA-Public Use
  Company Number: DE-ACCORD-155043

PATIENT
  Age: 1 Day
  Sex: Female
  Weight: 2.65 kg

DRUGS (6)
  1. CODEINE PHOSPHATE/PARACETAMOL [Concomitant]
     Indication: TENSION HEADACHE
     Dosage: 30 MG/D  / 500 MG/D / TAKEN ON TWO OCCASSIONS BETWEEN GW 28 AND 30.
     Route: 064
  2. AMITRIPTYLINE [Suspect]
     Active Substance: AMITRIPTYLINE
     Indication: DEPRESSION
     Dosage: 75 MG/D (0-0-0-1)
     Route: 064
     Dates: start: 20170422, end: 20180114
  3. L-THYROXIN [Concomitant]
     Active Substance: LEVOTHYROXINE SODIUM
     Indication: HYPOTHYROIDISM
     Dosage: 75 UG/DAY
     Route: 064
     Dates: start: 20170422, end: 20180114
  4. IBUPROFEN. [Concomitant]
     Active Substance: IBUPROFEN
     Indication: TENSION HEADACHE
     Dosage: 800 MG/D (B.BED.) / IF NEEDED
     Route: 064
  5. FOLIO FORTE [Concomitant]
     Active Substance: FOLIC ACID\VITAMINS
     Indication: PROPHYLAXIS OF NEURAL TUBE DEFECT
     Dosage: 0.8 MG/D (BIS 0.4)
     Route: 064
     Dates: start: 20170422, end: 20171102
  6. PARACETAMOL [Concomitant]
     Active Substance: ACETAMINOPHEN
     Indication: TENSION HEADACHE
     Dosage: 1000 MG/D (B.BED.) / SINGLE DOSES WERE TAKEN IN THE 1ST TRIMESTER
     Route: 064

REACTIONS (3)
  - Hyperbilirubinaemia [Recovered/Resolved]
  - Respiratory disorder neonatal [Recovered/Resolved]
  - Foetal exposure during pregnancy [Unknown]

NARRATIVE: CASE EVENT DATE: 20180114
